FAERS Safety Report 18670559 (Version 29)
Quarter: 2024Q1

REPORT INFORMATION
  Report Type: Report from Study
  Country: US (occurrence: US)
  Receive Date: 20201228
  Receipt Date: 20240304
  Transmission Date: 20240409
  Serious: Yes (Hospitalization, Other)
  Sender: FDA-Public Use
  Company Number: US-SHIRE-US201939853

PATIENT
  Age: 39 Year
  Sex: Female
  Weight: 57 kg

DRUGS (24)
  1. HUMAN IMMUNOGLOBULIN G [Suspect]
     Active Substance: HUMAN IMMUNOGLOBULIN G
     Indication: Primary immunodeficiency syndrome
     Dosage: 20 GRAM, MONTHLY
     Route: 042
  2. HUMAN IMMUNOGLOBULIN G [Suspect]
     Active Substance: HUMAN IMMUNOGLOBULIN G
     Indication: Selective IgG subclass deficiency
     Dosage: 25 GRAM, MONTHLY
     Route: 042
  3. HUMAN IMMUNOGLOBULIN G [Suspect]
     Active Substance: HUMAN IMMUNOGLOBULIN G
     Indication: Immunodeficiency
     Dosage: 20 GRAM, Q3WEEKS
     Route: 042
  4. HUMAN IMMUNOGLOBULIN G [Suspect]
     Active Substance: HUMAN IMMUNOGLOBULIN G
     Dosage: 22 GRAM, Q3WEEKS
     Route: 042
  5. HUMAN IMMUNOGLOBULIN G [Suspect]
     Active Substance: HUMAN IMMUNOGLOBULIN G
     Dosage: 24 GRAM, Q3WEEKS
     Route: 042
  6. HUMAN IMMUNOGLOBULIN G [Suspect]
     Active Substance: HUMAN IMMUNOGLOBULIN G
     Dosage: 10 GRAM, 1/WEEK
     Route: 042
  7. HUMAN IMMUNOGLOBULIN G [Suspect]
     Active Substance: HUMAN IMMUNOGLOBULIN G
     Dosage: 35 GRAM, Q3WEEKS
     Route: 042
  8. HUMAN IMMUNOGLOBULIN G [Suspect]
     Active Substance: HUMAN IMMUNOGLOBULIN G
     Dosage: 16 GRAM, 1/WEEK
     Route: 058
  9. HUMAN IMMUNOGLOBULIN G [Suspect]
     Active Substance: HUMAN IMMUNOGLOBULIN G
     Dosage: 10 GRAM, 1/WEEK
     Route: 058
  10. HUMAN IMMUNOGLOBULIN G [Suspect]
     Active Substance: HUMAN IMMUNOGLOBULIN G
     Dosage: 5 GRAM, 1/WEEK
     Route: 058
  11. BENADRYL [Suspect]
     Active Substance: DIPHENHYDRAMINE HYDROCHLORIDE
     Indication: Product used for unknown indication
     Dosage: UNK
     Route: 065
  12. ACETAMINOPHEN [Concomitant]
     Active Substance: ACETAMINOPHEN
     Dosage: UNK
     Route: 065
  13. DIPHENHYDRAMINE [Concomitant]
     Active Substance: DIPHENHYDRAMINE
     Dosage: UNK
     Route: 065
  14. LIDOCAINE [Concomitant]
     Active Substance: LIDOCAINE
     Dosage: UNK
     Route: 065
  15. SODIUM CHLORIDE [Concomitant]
     Active Substance: SODIUM CHLORIDE
     Dosage: UNK
     Route: 065
  16. SODIUM CHLORIDE [Concomitant]
     Active Substance: SODIUM CHLORIDE
     Dosage: UNK
     Route: 065
  17. EPINEPHRINE [Concomitant]
     Active Substance: EPINEPHRINE
     Dosage: UNK
     Route: 065
  18. GEODON [Concomitant]
     Active Substance: ZIPRASIDONE HYDROCHLORIDE\ZIPRASIDONE MESYLATE
     Dosage: UNK
     Route: 065
  19. ACARBOSE [Concomitant]
     Active Substance: ACARBOSE
     Dosage: UNK
     Route: 065
  20. DIAZEPAM [Concomitant]
     Active Substance: DIAZEPAM
     Dosage: UNK
     Route: 065
  21. ARMOUR THYROID [Concomitant]
     Active Substance: THYROID, PORCINE
     Dosage: UNK
     Route: 065
  22. WELCHOL [Concomitant]
     Active Substance: COLESEVELAM HYDROCHLORIDE
     Dosage: UNK
     Route: 065
  23. L THEANINE [Concomitant]
     Dosage: UNK
     Route: 065
  24. MELATONIN [Concomitant]
     Active Substance: MELATONIN
     Dosage: UNK
     Route: 065

REACTIONS (73)
  - Tongue fungal infection [Unknown]
  - Eating disorder [Unknown]
  - Fall [Unknown]
  - Blood pressure decreased [Recovered/Resolved]
  - Colitis [Unknown]
  - Loss of consciousness [Unknown]
  - Epstein-Barr virus infection reactivation [Unknown]
  - Hypoxia [Unknown]
  - Pneumothorax [Unknown]
  - Clostridium difficile infection [Unknown]
  - Heart rate decreased [Unknown]
  - Thinking abnormal [Unknown]
  - Malaise [Unknown]
  - Fatigue [Unknown]
  - Nausea [Unknown]
  - Haemochromatosis [Unknown]
  - Viral infection [Unknown]
  - Heavy menstrual bleeding [Unknown]
  - Feeling drunk [Unknown]
  - Menstruation irregular [Unknown]
  - Infection [Unknown]
  - Ear pain [Unknown]
  - Subcutaneous drug absorption impaired [Unknown]
  - Gastrointestinal disorder [Unknown]
  - Nasopharyngitis [Unknown]
  - Weight increased [Unknown]
  - Weight decreased [Unknown]
  - Thyroid hormones decreased [Unknown]
  - Mastocytosis [Unknown]
  - Tryptase increased [Unknown]
  - Blood glucose decreased [Unknown]
  - Fibromyalgia [Unknown]
  - Sluggishness [Unknown]
  - Thirst [Unknown]
  - Dehydration [Unknown]
  - Confusional state [Unknown]
  - Illness [Unknown]
  - Toothache [Unknown]
  - Gastroenteritis viral [Unknown]
  - Gait disturbance [Unknown]
  - Depression [Unknown]
  - Gait inability [Unknown]
  - Inability to afford medication [Unknown]
  - Malnutrition [Unknown]
  - Oxygen saturation increased [Unknown]
  - Haemorrhagic disorder [Unknown]
  - Photophobia [Unknown]
  - Feeling abnormal [Unknown]
  - Pain [Unknown]
  - Somnolence [Unknown]
  - Anaemia [Unknown]
  - Eye pain [Unknown]
  - Infusion site extravasation [Unknown]
  - Pyrexia [Unknown]
  - Abdominal pain upper [Unknown]
  - Chest pain [Unknown]
  - Dyspnoea [Unknown]
  - Dizziness [Unknown]
  - Headache [Unknown]
  - Decreased appetite [Unknown]
  - Influenza like illness [Unknown]
  - Contusion [Unknown]
  - Sinusitis [Unknown]
  - White blood cell count decreased [Not Recovered/Not Resolved]
  - Anxiety [Unknown]
  - Infusion site pain [Unknown]
  - Oropharyngeal pain [Unknown]
  - Wrong technique in device usage process [Unknown]
  - Incorrect drug administration rate [Unknown]
  - Incorrect dose administered [Unknown]
  - Product dose omission issue [Unknown]
  - Discontinued product administered [Unknown]
  - Inappropriate schedule of product administration [Unknown]

NARRATIVE: CASE EVENT DATE: 20191212
